FAERS Safety Report 8936986 (Version 1)
Quarter: 2012Q4

REPORT INFORMATION
  Report Type: Report from Study
  Country: SE (occurrence: SE)
  Receive Date: 20121130
  Receipt Date: 20121130
  Transmission Date: 20130627
  Serious: Yes (Hospitalization)
  Sender: FDA-Public Use
  Company Number: SE-BAXTER-2012BAX025254

PATIENT
  Age: 56 Year
  Sex: Female
  Weight: 58.5 kg

DRUGS (6)
  1. SENDOXAN 1000 MG PULVER TIL INJEKSJONSV?SKE, OPPL?SNING [Suspect]
     Indication: BREAST CANCER
     Route: 065
  2. TRASTUZUMAB [Suspect]
     Indication: BREAST CANCER
     Dosage: LOADING DOSE
     Route: 042
     Dates: start: 20050922
  3. TRASTUZUMAB [Suspect]
     Dosage: MAINTENANCE DOSE
     Route: 042
     Dates: start: 20051013, end: 20060915
  4. FLUOROURACIL [Suspect]
     Indication: BREAST CANCER
     Route: 065
  5. EPIRUBICIN [Suspect]
     Indication: BREAST CANCER
     Route: 065
  6. LEVAXIN [Concomitant]
     Indication: DRUG USE FOR UNKNOWN INDICATION
     Route: 065
     Dates: start: 20030804

REACTIONS (2)
  - Ventricular extrasystoles [Not Recovered/Not Resolved]
  - Dizziness [None]
